FAERS Safety Report 4991217-6 (Version None)
Quarter: 2006Q2

REPORT INFORMATION
  Report Type: 
  Country: None (occurrence: None)
  Receive Date: 20060504
  Receipt Date: 20060424
  Transmission Date: 20061013
  Serious: Yes (Other)
  Sender: FDA-Public Use
  Company Number: SE-JNJFOC-20060202151

PATIENT
  Age: 12 Month

DRUGS (2)
  1. REMICADE [Suspect]
     Indication: CROHN'S DISEASE
     Route: 050
  2. IMUREL [Concomitant]
     Route: 065

REACTIONS (2)
  - METASTASES TO LUNG [None]
  - SQUAMOUS CELL CARCINOMA [None]
